FAERS Safety Report 19482148 (Version 1)
Quarter: 2021Q3

REPORT INFORMATION
  Report Type: Spontaneous
  Country: US (occurrence: US)
  Receive Date: 20210701
  Receipt Date: 20210701
  Transmission Date: 20211014
  Serious: Yes (Hospitalization, Other)
  Sender: FDA-Public Use
  Company Number: US-ASTRAZENECA-2021A558056

PATIENT
  Sex: Male
  Weight: 92.5 kg

DRUGS (2)
  1. BRILINTA [Suspect]
     Active Substance: TICAGRELOR
     Indication: ANTICOAGULANT THERAPY
     Route: 048
  2. BRILINTA [Suspect]
     Active Substance: TICAGRELOR
     Indication: ANTICOAGULANT THERAPY
     Route: 048
     Dates: start: 2019

REACTIONS (9)
  - Back pain [Unknown]
  - Chest pain [Unknown]
  - Unevaluable event [Unknown]
  - Poor peripheral circulation [Not Recovered/Not Resolved]
  - Swelling [Unknown]
  - Pain in extremity [Unknown]
  - Gait inability [Not Recovered/Not Resolved]
  - Musculoskeletal discomfort [Unknown]
  - Bronchitis [Unknown]
